FAERS Safety Report 7731044-X (Version None)
Quarter: 2011Q3

REPORT INFORMATION
  Report Type: 
  Country: None (occurrence: None)
  Receive Date: 20110906
  Receipt Date: 20110906
  Transmission Date: 20111222
  Serious: Yes (Hospitalization, Other)
  Sender: FDA-Public Use
  Company Number: None

PATIENT
  Age: 55 Year
  Sex: Male
  Weight: 74.842 kg

DRUGS (1)
  1. JALYN [Suspect]
     Indication: BENIGN PROSTATIC HYPERPLASIA
     Dosage: ONE CAPSULE
     Route: 048

REACTIONS (6)
  - ARTHRALGIA [None]
  - MUSCULOSKELETAL PAIN [None]
  - POLYMYALGIA RHEUMATICA [None]
  - MUSCLE SPASMS [None]
  - INFLUENZA LIKE ILLNESS [None]
  - ABASIA [None]
